FAERS Safety Report 22065889 (Version 1)
Quarter: 2023Q1

REPORT INFORMATION
  Report Type: Spontaneous
  Country: TW (occurrence: TW)
  Receive Date: 20230306
  Receipt Date: 20230306
  Transmission Date: 20230417
  Serious: Yes (Death, Other)
  Sender: FDA-Public Use
  Company Number: TW-AMGEN-TWNSP2023036019

PATIENT

DRUGS (2)
  1. BEVACIZUMAB [Suspect]
     Active Substance: BEVACIZUMAB
     Indication: Colorectal cancer metastatic
     Dosage: 6 CYCLES/ MORE THAN EQUAL TO 7 CYCLES
     Route: 065
  2. FLUOROURACIL\IRINOTECAN\LEUCOVORIN [Concomitant]
     Active Substance: FLUOROURACIL\IRINOTECAN\LEUCOVORIN
     Indication: Colorectal cancer metastatic
     Dosage: 6 CYCLES/ MORE THAN EQUAL TO 7 CYCLES

REACTIONS (15)
  - Death [Fatal]
  - Colorectal cancer metastatic [Unknown]
  - Post procedural infection [Unknown]
  - Postoperative wound infection [Unknown]
  - Acute kidney injury [Unknown]
  - Postoperative ileus [Unknown]
  - Post procedural myocardial infarction [Unknown]
  - Post procedural haemorrhage [Unknown]
  - Adverse event [Unknown]
  - Therapy partial responder [Unknown]
  - Therapy non-responder [Unknown]
  - Postoperative abscess [Unknown]
  - Urinary retention postoperative [Unknown]
  - Lung disorder [Unknown]
  - Urinary tract infection [Unknown]
